FAERS Safety Report 19127480 (Version 1)
Quarter: 2021Q2

REPORT INFORMATION
  Report Type: Spontaneous
  Country: US (occurrence: US)
  Receive Date: 20210413
  Receipt Date: 20210413
  Transmission Date: 20210717
  Serious: No
  Sender: FDA-Public Use
  Company Number: US-ALLERGAN-2014518US

PATIENT
  Sex: Female

DRUGS (1)
  1. LATISSE [Suspect]
     Active Substance: BIMATOPROST
     Indication: PRODUCT USED FOR UNKNOWN INDICATION
     Dosage: 4 GTT
     Dates: start: 2019

REACTIONS (5)
  - Inappropriate schedule of product administration [Unknown]
  - Drug ineffective [Unknown]
  - Product physical consistency issue [Unknown]
  - Wrong technique in product usage process [Unknown]
  - Eyelid irritation [Unknown]
